FAERS Safety Report 10093668 (Version 1)
Quarter: 2014Q2

REPORT INFORMATION
  Report Type: Spontaneous
  Country: US (occurrence: US)
  Receive Date: 20140421
  Receipt Date: 20140421
  Transmission Date: 20141212
  Serious: No
  Sender: FDA-Public Use
  Company Number: US-SA-2014SA009610

PATIENT
  Age: 74 Year
  Sex: Female

DRUGS (2)
  1. ALLEGRA [Suspect]
     Indication: HOUSE DUST ALLERGY
     Route: 048
  2. ALLEGRA [Suspect]
     Indication: MYCOTIC ALLERGY
     Route: 048

REACTIONS (3)
  - Constipation [Unknown]
  - Feeling abnormal [Unknown]
  - Sleep disorder [Unknown]
